FAERS Safety Report 20531622 (Version 2)
Quarter: 2022Q2

REPORT INFORMATION
  Report Type: Report from Study
  Country: AU (occurrence: None)
  Receive Date: 20220301
  Receipt Date: 20220518
  Transmission Date: 20220721
  Serious: Yes (Hospitalization)
  Sender: FDA-Public Use
  Company Number: AU-Eisai Medical Research-EC-2021-102372

PATIENT
  Age: 14 Year
  Sex: Male
  Weight: 51 kg

DRUGS (14)
  1. LENVATINIB [Suspect]
     Active Substance: LENVATINIB
     Indication: Hepatocellular carcinoma
     Route: 048
     Dates: start: 20211021, end: 20211027
  2. LENVATINIB [Suspect]
     Active Substance: LENVATINIB
     Route: 048
     Dates: start: 20211105, end: 20211210
  3. TACROLIMUS [Concomitant]
     Active Substance: TACROLIMUS
     Dates: start: 20210928, end: 20211103
  4. OXYCODONE [Concomitant]
     Active Substance: OXYCODONE
     Dates: start: 20210928, end: 20211020
  5. BACTRIM [Concomitant]
     Active Substance: SULFAMETHOXAZOLE\TRIMETHOPRIM
     Dates: start: 20211008
  6. CLONIDINE [Concomitant]
     Active Substance: CLONIDINE
     Dates: start: 20211008, end: 20211210
  7. CYCLIZINE [Concomitant]
     Active Substance: CYCLIZINE
     Dates: start: 20211020
  8. FENTANYL [Concomitant]
     Active Substance: FENTANYL
     Dates: start: 20211012, end: 20211019
  9. PANTOPRAZOLE [Concomitant]
     Active Substance: PANTOPRAZOLE
     Dates: start: 20211021, end: 20211110
  10. DEXAMETHASONE [Concomitant]
     Active Substance: DEXAMETHASONE
     Dates: start: 20211004, end: 20211212
  11. LORAZEPAM [Concomitant]
     Active Substance: LORAZEPAM
     Dates: start: 20211008
  12. GRANISETRON [Concomitant]
     Active Substance: GRANISETRON
     Dates: start: 20211010
  13. CYCLIZINE [Concomitant]
     Active Substance: CYCLIZINE
     Route: 042
     Dates: start: 20211016
  14. FENTANYL [Concomitant]
     Active Substance: FENTANYL
     Dates: start: 20211020, end: 20211024

REACTIONS (1)
  - Intra-abdominal haemorrhage [Recovered/Resolved]

NARRATIVE: CASE EVENT DATE: 20211024
